FAERS Safety Report 11849382 (Version 1)
Quarter: 2015Q4

REPORT INFORMATION
  Report Type: Report from Study
  Country: US (occurrence: US)
  Receive Date: 20151218
  Receipt Date: 20151218
  Transmission Date: 20160305
  Serious: No
  Sender: FDA-Public Use
  Company Number: GXBR2015US002566

PATIENT
  Sex: Male

DRUGS (1)
  1. OMNITROPE [Suspect]
     Active Substance: SOMATROPIN
     Indication: GROWTH HORMONE DEFICIENCY
     Dosage: ALTERNATES BETWEEN1.6 MG AND 1.7 MG, 6 DAYS A WEEK
     Route: 065
     Dates: start: 201510

REACTIONS (1)
  - Injection site bruising [Not Recovered/Not Resolved]
